FAERS Safety Report 12180956 (Version 2)
Quarter: 2016Q1

REPORT INFORMATION
  Report Type: Spontaneous
  Country: JP (occurrence: JP)
  Receive Date: 20160315
  Receipt Date: 20160329
  Transmission Date: 20160526
  Serious: Yes (Death, Other)
  Sender: FDA-Public Use
  Company Number: JP-ALLERGAN-1644936US

PATIENT
  Age: 9 Year
  Sex: Female

DRUGS (1)
  1. BOTOX [Suspect]
     Active Substance: ONABOTULINUMTOXINA
     Indication: PRODUCT USED FOR UNKNOWN INDICATION
     Dosage: 150 UNITS, SINGLE
     Route: 030
     Dates: start: 20160216, end: 20160216

REACTIONS (6)
  - Disseminated intravascular coagulation [Fatal]
  - Appendicitis [Fatal]
  - Peritonitis [Fatal]
  - Shock [Fatal]
  - Pyrexia [Unknown]
  - Vomiting [Unknown]
